FAERS Safety Report 10514656 (Version 2)
Quarter: 2015Q1

REPORT INFORMATION
  Report Type: Spontaneous
  Country: DK (occurrence: CA)
  Receive Date: 20141013
  Receipt Date: 20150210
  Transmission Date: 20150720
  Serious: Yes (Life-Threatening)
  Sender: FDA-Public Use
  Company Number: CA-FRI-1000071386

PATIENT
  Age: 67 Year
  Sex: Female
  Weight: 124.74 kg

DRUGS (11)
  1. BRICANYL [Concomitant]
     Active Substance: TERBUTALINE SULFATE
     Dosage: DAILY DOSE NOT REPORTED
  2. APO FUROSEMIDE [Concomitant]
     Active Substance: FUROSEMIDE
     Dosage: 40 MG
  3. SYMBICORT [Concomitant]
     Active Substance: BUDESONIDE\FORMOTEROL FUMARATE DIHYDRATE
     Dosage: DAILY DOSE NOT REPORTED
  4. ESCITALOPRAM [Suspect]
     Active Substance: ESCITALOPRAM OXALATE
     Indication: FATIGUE
  5. APO ALPRAZ [Concomitant]
     Dosage: 3 MG
  6. EURO K 20 [Concomitant]
     Dosage: 1500 MG
  7. PMS_LISINOPRIL [Concomitant]
     Dosage: 10 MG
  8. WELLBUTRIN [Concomitant]
     Active Substance: BUPROPION HYDROCHLORIDE
     Dosage: 300 MG
  9. APO-LANSOPRAZ [Concomitant]
     Dosage: 30 MG
  10. ESCITALOPRAM [Suspect]
     Active Substance: ESCITALOPRAM OXALATE
     Indication: DECREASED APPETITE
     Dosage: 5 MG
     Route: 048
     Dates: start: 20140117, end: 20140123
  11. LOWPIN [Concomitant]
     Dosage: 80 MG

REACTIONS (10)
  - Product use issue [Recovering/Resolving]
  - Asthenia [Recovering/Resolving]
  - Vomiting [Recovering/Resolving]
  - Tremor [Recovering/Resolving]
  - Nausea [Recovering/Resolving]
  - Polyuria [Recovering/Resolving]
  - Muscular weakness [Recovering/Resolving]
  - Decreased appetite [Recovering/Resolving]
  - Oxygen saturation decreased [Recovering/Resolving]
  - Diarrhoea [Recovering/Resolving]

NARRATIVE: CASE EVENT DATE: 20140117
